FAERS Safety Report 5083349-1 (Version None)
Quarter: 2006Q3

REPORT INFORMATION
  Report Type: 
  Country: None (occurrence: None)
  Receive Date: 20060720
  Receipt Date: 20060516
  Transmission Date: 20061208
  Serious: Yes (Death)
  Sender: FDA-Public Use
  Company Number: 2006065350

PATIENT
  Age: 53 Year
  Sex: Female
  Weight: 91.6266 kg

DRUGS (1)
  1. CELEBREX [Suspect]
     Indication: PAIN
     Dosage: 400 MG (200 MG, 2 IN 1 D), UNKNOWN
     Dates: start: 20020530

REACTIONS (1)
  - MYOCARDIAL INFARCTION [None]
